FAERS Safety Report 4578820-2 (Version None)
Quarter: 2005Q1

REPORT INFORMATION
  Report Type: 
  Country: None (occurrence: None)
  Receive Date: 20050211
  Receipt Date: 20050204
  Transmission Date: 20050727
  Serious: Yes (Other)
  Sender: FDA-Public Use
  Company Number: US-BRISTOL-MYERS SQUIBB COMPANY-12850889

PATIENT
  Age: 37 Year
  Sex: Male
  Weight: 80 kg

DRUGS (4)
  1. CETUXIMAB [Suspect]
     Indication: RECTAL CANCER
     Dosage: ACTUAL DOSE: 507.5 MG
     Route: 042
     Dates: start: 20050119, end: 20050131
  2. OXALIPLATIN [Suspect]
     Indication: RECTAL CANCER
     Dosage: ACTUAL DOSE: 203 MG.
     Dates: start: 20050120
  3. XELODA [Suspect]
     Indication: RECTAL CANCER
     Dosage: 800 MG/M2 BID TAKEN EVERY DAY OF RADIATION THERAPY.
     Route: 048
  4. RADIATION THERAPY [Suspect]
     Indication: RECTAL CANCER

REACTIONS (12)
  - ALANINE AMINOTRANSFERASE INCREASED [None]
  - ASPARTATE AMINOTRANSFERASE INCREASED [None]
  - BLOOD BILIRUBIN INCREASED [None]
  - BLOOD CALCIUM DECREASED [None]
  - BLOOD SODIUM DECREASED [None]
  - CONSTIPATION [None]
  - DEHYDRATION [None]
  - DERMATITIS ACNEIFORM [None]
  - HAEMATOCRIT DECREASED [None]
  - HAEMOGLOBIN DECREASED [None]
  - SYNCOPE [None]
  - VOMITING [None]
